FAERS Safety Report 22186234 (Version 3)
Quarter: 2023Q2

REPORT INFORMATION
  Report Type: Report from Study
  Country: GR (occurrence: None)
  Receive Date: 20230407
  Receipt Date: 20230515
  Transmission Date: 20230722
  Serious: Yes (Death, Hospitalization)
  Sender: FDA-Public Use
  Company Number: GR-ROCHE-3312518

PATIENT
  Age: 85 Year
  Sex: Male
  Weight: 74 kg

DRUGS (10)
  1. POLATUZUMAB VEDOTIN [Suspect]
     Active Substance: POLATUZUMAB VEDOTIN
     Indication: Diffuse large B-cell lymphoma refractory
     Dosage: DOSE OF LAST POLATUZUMAB VEDOTIN ADMINISTERED PRIOR TO AE, SAE ONSET  133MG, HE RECEIVED SUBSEQUENT
     Route: 042
     Dates: start: 20230119
  2. RITUXIMAB [Suspect]
     Active Substance: RITUXIMAB
     Indication: Diffuse large B-cell lymphoma refractory
     Dosage: DOSE OF LAST RITUXIMAB ADMINISTERED PRIOR TO AE, SAE ONSET 713 MG, HE RECEIVED SUBSEQUENT DOSE ON 13
     Route: 041
     Dates: start: 20230119
  3. GEMCITABINE [Suspect]
     Active Substance: GEMCITABINE
     Indication: Diffuse large B-cell lymphoma refractory
     Dosage: DOSE OF LAST GEMCITABINE ADMINISTERED PRIOR TO AE, SAE ONSET 1900 MG,  HE RECEIVED SUBSEQUENT DOSE O
     Route: 042
     Dates: start: 20230120
  4. OXALIPLATIN [Suspect]
     Active Substance: OXALIPLATIN
     Indication: Diffuse large B-cell lymphoma refractory
     Dosage: DOSE OF LAST OXALIPLATIN ADMINISTERED PRIOR TO AE, SAE ONSET 1900 MG, HE RECEIVED SUBSEQUENT DOSE ON
     Route: 042
     Dates: start: 20230120
  5. ZOVIRAX [Concomitant]
     Active Substance: ACYCLOVIR
     Route: 048
     Dates: start: 20220817
  6. SULFAMETHOXAZOLE\TRIMETHOPRIM [Concomitant]
     Active Substance: SULFAMETHOXAZOLE\TRIMETHOPRIM
     Route: 048
     Dates: start: 20220817
  7. KEPPRA [Concomitant]
     Active Substance: LEVETIRACETAM
     Route: 048
     Dates: start: 20230213
  8. DEXAMETHASONE [Concomitant]
     Active Substance: DEXAMETHASONE
     Route: 048
     Dates: start: 20230217, end: 20230228
  9. SODIUM CHLORIDE [Concomitant]
     Active Substance: SODIUM CHLORIDE
     Indication: Hyponatraemia
     Route: 042
     Dates: start: 20230228
  10. LIPEGFILGRASTIM [Concomitant]
     Active Substance: LIPEGFILGRASTIM
     Route: 058
     Dates: start: 20230121

REACTIONS (2)
  - COVID-19 [Not Recovered/Not Resolved]
  - Traumatic intracranial haemorrhage [Fatal]

NARRATIVE: CASE EVENT DATE: 20230314
